FAERS Safety Report 15415705 (Version 1)
Quarter: 2018Q3

REPORT INFORMATION
  Report Type: Spontaneous
  Country: US (occurrence: US)
  Receive Date: 20180922
  Receipt Date: 20180922
  Transmission Date: 20181010
  Serious: No
  Sender: FDA-Public Use
  Company Number: US-JNJFOC-20180818296

PATIENT
  Sex: Male
  Weight: 67.36 kg

DRUGS (14)
  1. FENTANYL. [Suspect]
     Active Substance: FENTANYL
     Indication: DIABETIC NEUROPATHY
     Route: 062
  2. FENTANYL. [Suspect]
     Active Substance: FENTANYL
     Indication: PAIN
     Route: 062
     Dates: start: 2011
  3. FENTANYL. [Suspect]
     Active Substance: FENTANYL
     Indication: DIABETIC NEUROPATHY
     Route: 062
  4. FENTANYL. [Suspect]
     Active Substance: FENTANYL
     Indication: DIABETIC NEUROPATHY
     Route: 062
     Dates: end: 20180810
  5. VITAMIN D3 [Concomitant]
     Active Substance: CHOLECALCIFEROL
     Indication: NUTRITIONAL SUPPLEMENTATION
     Route: 065
  6. FUROSEMIDE. [Concomitant]
     Active Substance: FUROSEMIDE
     Indication: OEDEMA
     Route: 065
  7. FENTANYL. [Suspect]
     Active Substance: FENTANYL
     Indication: PAIN
     Route: 062
  8. LEVOTHYROXINE. [Concomitant]
     Active Substance: LEVOTHYROXINE
     Indication: THYROID DISORDER
     Route: 065
  9. FENTANYL. [Suspect]
     Active Substance: FENTANYL
     Indication: DIABETIC NEUROPATHY
     Route: 062
     Dates: start: 2011
  10. FENTANYL. [Suspect]
     Active Substance: FENTANYL
     Indication: PAIN
     Route: 062
  11. DIAZEPAM. [Concomitant]
     Active Substance: DIAZEPAM
     Indication: BIPOLAR DISORDER
     Route: 065
  12. LIPITOR [Concomitant]
     Active Substance: ATORVASTATIN CALCIUM
     Indication: BLOOD CHOLESTEROL ABNORMAL
     Route: 048
  13. FENTANYL. [Suspect]
     Active Substance: FENTANYL
     Indication: PAIN
     Route: 062
     Dates: end: 20180810
  14. INSULIN [Concomitant]
     Active Substance: INSULIN NOS
     Indication: TYPE 1 DIABETES MELLITUS
     Route: 065

REACTIONS (9)
  - Nausea [Recovered/Resolved]
  - Withdrawal syndrome [Recovered/Resolved]
  - Therapeutic response decreased [Recovered/Resolved]
  - Infection [Unknown]
  - Feeling hot [Unknown]
  - Diabetic neuropathy [Unknown]
  - Malaise [Recovered/Resolved]
  - Blood glucose decreased [Unknown]
  - Adverse event [Unknown]

NARRATIVE: CASE EVENT DATE: 2012
